FAERS Safety Report 24839579 (Version 1)
Quarter: 2025Q1

REPORT INFORMATION
  Report Type: Spontaneous
  Country: US (occurrence: US)
  Receive Date: 20250114
  Receipt Date: 20250114
  Transmission Date: 20250409
  Serious: No
  Sender: AMGEN
  Company Number: US-AMGEN-USASP2025003725

PATIENT
  Sex: Female
  Weight: 51.247 kg

DRUGS (3)
  1. EVENITY [Suspect]
     Active Substance: ROMOSOZUMAB-AQQG
     Indication: Osteoporosis
     Route: 065
     Dates: start: 2022, end: 2023
  2. CALCIUM [Concomitant]
     Active Substance: CALCIUM
     Route: 065
  3. VITAMINS [Concomitant]
     Active Substance: VITAMINS
     Route: 065

REACTIONS (2)
  - Asthma [Recovered/Resolved]
  - Drug ineffective [Unknown]
